FAERS Safety Report 8017078-9 (Version None)
Quarter: 2012Q1

REPORT INFORMATION
  Report Type: 
  Country: None (occurrence: None)
  Receive Date: 20120102
  Receipt Date: 20111229
  Transmission Date: 20120608
  Serious: Yes (Death, Other)
  Sender: FDA-Public Use
  Company Number: PHEH2008US09641

PATIENT
  Sex: Female

DRUGS (26)
  1. DETROL                                  /USA/ [Concomitant]
  2. DOXYCYCLINE [Concomitant]
  3. REGLAN [Concomitant]
     Dosage: 10 MG, PRN
  4. SENOKOT [Concomitant]
  5. CARDIZEM [Concomitant]
     Dosage: 120 MG, QD
     Route: 048
  6. CHEMOTHERAPEUTICS [Concomitant]
  7. LASIX [Concomitant]
     Dosage: 20 MG, EVERY OTHER DAY
  8. TAXOL [Concomitant]
     Dates: end: 20021201
  9. ZOMETA [Suspect]
     Indication: BREAST CANCER METASTATIC
     Dates: start: 20030101
  10. FOSAMAX [Concomitant]
     Dosage: 10 MG, QD
     Route: 048
  11. ARIMIDEX [Concomitant]
  12. ATACAND [Concomitant]
     Dosage: 16 MG, QD
     Route: 048
  13. TAXOTERE [Concomitant]
     Dates: end: 20020813
  14. POTASSIUM CHLORIDE [Concomitant]
     Dosage: 20 MG, EVERY OTHER DAY
  15. PROMETHAZINE [Concomitant]
  16. MACROBID [Concomitant]
  17. PREVACID [Concomitant]
     Dosage: 30 MG, QD
  18. PREDNISONE [Concomitant]
     Route: 048
  19. XELODA [Concomitant]
  20. DITROPAN [Concomitant]
  21. DEXAMETHASONE [Concomitant]
     Dosage: 4 MG, TID
  22. LIPITOR [Concomitant]
     Dosage: 20 MG, QD
     Route: 048
  23. CARBOPLATIN [Concomitant]
  24. ADRIAMYCIN PFS [Concomitant]
  25. ZOFRAN [Concomitant]
  26. LEVAQUIN [Concomitant]
     Dosage: 500 MG, QD

REACTIONS (50)
  - ASCITES [None]
  - OEDEMA [None]
  - INJURY [None]
  - QUALITY OF LIFE DECREASED [None]
  - HYPOAESTHESIA [None]
  - COLON CANCER [None]
  - ATELECTASIS [None]
  - METASTATIC NEOPLASM [None]
  - PLEURAL EFFUSION [None]
  - ARTHRITIS [None]
  - URETERIC OBSTRUCTION [None]
  - DYSURIA [None]
  - COUGH [None]
  - INTESTINAL DILATATION [None]
  - MYOCARDIAL INFARCTION [None]
  - DEATH [None]
  - ABSCESS [None]
  - LARGE INTESTINAL OBSTRUCTION [None]
  - OSTEOPOROSIS [None]
  - RENAL CYST [None]
  - PNEUMOTHORAX [None]
  - NEPHROLITHIASIS [None]
  - HYDRONEPHROSIS [None]
  - OSTEONECROSIS OF JAW [None]
  - OSTEOMYELITIS [None]
  - PYREXIA [None]
  - MUCOSAL NECROSIS [None]
  - VOMITING [None]
  - METASTASES TO ABDOMINAL CAVITY [None]
  - PARAESTHESIA [None]
  - INTESTINAL STENOSIS [None]
  - OVARIAN CANCER [None]
  - HEPATIC MASS [None]
  - ABDOMINAL PAIN [None]
  - PURULENT DISCHARGE [None]
  - GASTROINTESTINAL HYPOMOTILITY [None]
  - OSTEOPENIA [None]
  - METASTASES TO BONE [None]
  - DYSPNOEA [None]
  - HEPATIC CIRRHOSIS [None]
  - HEPATIC NEOPLASM [None]
  - CHRONIC OBSTRUCTIVE PULMONARY DISEASE [None]
  - INFECTION [None]
  - FACIAL PAIN [None]
  - CONSTIPATION [None]
  - HYPERTENSION [None]
  - POLLAKIURIA [None]
  - NEOPLASM MALIGNANT [None]
  - OEDEMA PERIPHERAL [None]
  - RENAL ATROPHY [None]
